FAERS Safety Report 8721200 (Version 2)
Quarter: 2013Q4

REPORT INFORMATION
  Report Type: Spontaneous
  Country: US (occurrence: US)
  Receive Date: 20120813
  Receipt Date: 20131031
  Transmission Date: 20140711
  Serious: No
  Sender: FDA-Public Use
  Company Number: US-009507513-2012SP017772

PATIENT
  Sex: Male

DRUGS (1)
  1. COPPERTONE ULTRAGUARD SUNSCREEN CONTINUOUS SPRAY SPF 30 [Suspect]
     Indication: PRODUCT USED FOR UNKNOWN INDICATION
     Dosage: UNK UNK, UNKNOWN
     Route: 061
     Dates: start: 201203

REACTIONS (2)
  - Sunburn [Unknown]
  - Skin exfoliation [Unknown]
